FAERS Safety Report 5099902-5 (Version None)
Quarter: 2006Q3

REPORT INFORMATION
  Report Type: 
  Country: None (occurrence: None)
  Receive Date: 20060906
  Receipt Date: 20060906
  Transmission Date: 20061208
  Serious: Yes (Hospitalization)
  Sender: FDA-Public Use
  Company Number: None

PATIENT
  Sex: Female
  Weight: 73.6 kg

DRUGS (1)
  1. ENBREL [Suspect]
     Indication: RHEUMATOID ARTHRITIS
     Dosage: 50MG Q WEEK  SQ
     Route: 058
     Dates: start: 20060523, end: 20060712

REACTIONS (5)
  - CONVULSION [None]
  - FALL [None]
  - HAEMATOMA [None]
  - MIGRAINE [None]
  - TRANSIENT ISCHAEMIC ATTACK [None]
